FAERS Safety Report 5436027-0 (Version None)
Quarter: 2007Q3

REPORT INFORMATION
  Report Type: 
  Country: None (occurrence: None)
  Receive Date: 20070831
  Receipt Date: 20070823
  Transmission Date: 20080115
  Serious: Yes (Other)
  Sender: FDA-Public Use
  Company Number: B0482140A

PATIENT
  Age: 31 Year
  Sex: Male

DRUGS (1)
  1. PAXIL [Suspect]
     Indication: OBSESSIVE-COMPULSIVE DISORDER
     Dosage: 60MG PER DAY
     Route: 048
     Dates: start: 20031105, end: 20050101

REACTIONS (4)
  - AGGRESSION [None]
  - ANGER [None]
  - PERSONALITY CHANGE [None]
  - PERSONALITY DISORDER [None]
